FAERS Safety Report 7920171-X (Version None)
Quarter: 2011Q4

REPORT INFORMATION
  Report Type: 
  Country: None (occurrence: None)
  Receive Date: 20111117
  Receipt Date: 20111110
  Transmission Date: 20120403
  Serious: Yes (Other)
  Sender: FDA-Public Use
  Company Number: US-MYLANLABS-2011S1012617

PATIENT
  Age: 42 Year
  Sex: Female

DRUGS (11)
  1. NEURONTIN [Concomitant]
  2. AMNESTEEM [Suspect]
     Route: 048
     Dates: end: 20110403
  3. VICODIN [Concomitant]
  4. IBUPROFEN (ADVIL) [Concomitant]
  5. PRAZOSIN HCL [Concomitant]
  6. CLARAVIS [Suspect]
     Route: 048
     Dates: start: 20110105
  7. BENADRYL [Concomitant]
  8. PLAN B [Suspect]
     Indication: CONTRACEPTION
     Dates: start: 20110429, end: 20110429
  9. AMNESTEEM [Suspect]
     Route: 048
     Dates: end: 20110403
  10. MIRAPEX [Concomitant]
  11. ADDERALL 5 [Concomitant]

REACTIONS (4)
  - MATERNAL EXPOSURE BEFORE PREGNANCY [None]
  - BLIGHTED OVUM [None]
  - ABORTION SPONTANEOUS [None]
  - VAGINAL HAEMORRHAGE [None]
